FAERS Safety Report 6538774-6 (Version None)
Quarter: 2010Q1

REPORT INFORMATION
  Report Type: 
  Country: None (occurrence: None)
  Receive Date: 20100114
  Receipt Date: 20100114
  Transmission Date: 20100710
  Serious: Yes (Death, Hospitalization)
  Sender: FDA-Public Use
  Company Number: None

PATIENT
  Age: 47 Year
  Sex: Female
  Weight: 100 kg

DRUGS (2)
  1. CIPROFLOXACIN 1000 MG UNK [Suspect]
     Indication: URINARY TRACT INFECTION
     Dosage: 1000 MG DAILY ORAL 047
     Route: 048
  2. BACTRIM [Suspect]
     Indication: URINARY TRACT INFECTION
     Dosage: 800/160 MG DAILY ORAL 047
     Route: 048

REACTIONS (8)
  - DISSEMINATED INTRAVASCULAR COAGULATION [None]
  - JAUNDICE [None]
  - MALAISE [None]
  - MENTAL STATUS CHANGES [None]
  - MULTI-ORGAN FAILURE [None]
  - OCULAR ICTERUS [None]
  - PULMONARY OEDEMA [None]
  - RENAL FAILURE ACUTE [None]
